FAERS Safety Report 8456912-5 (Version None)
Quarter: 2012Q2

REPORT INFORMATION
  Report Type: 
  Country: None (occurrence: None)
  Receive Date: 20120621
  Receipt Date: 20120614
  Transmission Date: 20120825
  Serious: Yes (Hospitalization)
  Sender: FDA-Public Use
  Company Number: US-TEVA-343310USA

PATIENT
  Sex: Female

DRUGS (2)
  1. COPAXONE [Suspect]
     Indication: MULTIPLE SCLEROSIS
     Route: 058
  2. AMPYRA [Suspect]
     Dosage: 20 MILLIGRAM;
     Route: 048
     Dates: start: 20120101

REACTIONS (5)
  - ANXIETY [None]
  - DYSPNOEA [None]
  - FEELING HOT [None]
  - PRESYNCOPE [None]
  - CHILLS [None]
